FAERS Safety Report 9877970 (Version 1)
Quarter: 2014Q1

REPORT INFORMATION
  Report Type: Spontaneous
  Country: US (occurrence: US)
  Receive Date: 20140206
  Receipt Date: 20140206
  Transmission Date: 20141002
  Serious: Yes (Other)
  Sender: FDA-Public Use
  Company Number: US-BAYER-2014-014723

PATIENT
  Sex: Female

DRUGS (1)
  1. MIRENA [Suspect]
     Dosage: UNK
     Dates: start: 2006

REACTIONS (4)
  - Device use error [None]
  - Device difficult to use [Not Recovered/Not Resolved]
  - Procedural pain [None]
  - Device misuse [Not Recovered/Not Resolved]
